FAERS Safety Report 5910186-5 (Version None)
Quarter: 2008Q4

REPORT INFORMATION
  Report Type: 
  Country: None (occurrence: None)
  Receive Date: 20081007
  Receipt Date: 20071001
  Transmission Date: 20090506
  Serious: No
  Sender: FDA-Public Use
  Company Number: US-ASTRAZENECA-2007UW22900

PATIENT
  Age: 65 Year
  Sex: Female

DRUGS (4)
  1. ARIMIDEX [Suspect]
     Indication: BREAST CANCER RECURRENT
     Route: 048
  2. GLUCOPHAGE [Concomitant]
  3. COZAAR [Concomitant]
  4. AMYTRIPTILLINE [Concomitant]

REACTIONS (1)
  - MENTAL IMPAIRMENT [None]
